FAERS Safety Report 12279820 (Version 1)
Quarter: 2016Q2

REPORT INFORMATION
  Report Type: Spontaneous
  Country: US (occurrence: US)
  Receive Date: 20160418
  Receipt Date: 20160418
  Transmission Date: 20160815
  Serious: Yes (Hospitalization)
  Sender: FDA-Public Use
  Company Number: US-SHIRE-US201604248

PATIENT
  Sex: Male
  Weight: 63.49 kg

DRUGS (1)
  1. GATTEX [Suspect]
     Active Substance: TEDUGLUTIDE\WATER
     Indication: SHORT-BOWEL SYNDROME
     Dosage: UNK, UNKNOWN
     Route: 058
     Dates: start: 20150410

REACTIONS (3)
  - Weight decreased [Not Recovered/Not Resolved]
  - Emergency care [Not Recovered/Not Resolved]
  - Abdominal pain [Not Recovered/Not Resolved]
